FAERS Safety Report 4738962-5 (Version None)
Quarter: 2005Q3

REPORT INFORMATION
  Report Type: 
  Country: None (occurrence: None)
  Receive Date: 20050801
  Receipt Date: 20050523
  Transmission Date: 20060218
  Serious: Yes (Other)
  Sender: FDA-Public Use
  Company Number: 214319

PATIENT
  Age: 55 Year
  Sex: Male

DRUGS (5)
  1. RITUXAN [Suspect]
     Indication: CHRONIC LYMPHOCYTIC LEUKAEMIA
     Dosage: 375 MG/M2, D1, Q28D
     Dates: start: 20040901, end: 20041222
  2. CYTOXAN [Concomitant]
  3. FLUDARA [Concomitant]
  4. BACTRIM DS [Concomitant]
  5. LEUCOVORIN CALCIUM [Concomitant]

REACTIONS (1)
  - GRANULOCYTOPENIA [None]
